FAERS Safety Report 15488482 (Version 1)
Quarter: 2018Q4

REPORT INFORMATION
  Report Type: Spontaneous
  Country: IN (occurrence: IN)
  Receive Date: 20181011
  Receipt Date: 20181011
  Transmission Date: 20190205
  Serious: Yes (Death, Hospitalization, Other)
  Sender: FDA-Public Use
  Company Number: IN-TOLMAR, INC.-TOLG20180567

PATIENT
  Age: 0 Day
  Sex: Female

DRUGS (1)
  1. BETAMETHASONE DIPROPIONATE. [Suspect]
     Active Substance: BETAMETHASONE DIPROPIONATE
     Indication: FOETAL GROWTH RESTRICTION
     Dosage: ANTENATAL COURSE PRIOR TO EXIT DELIVERY
     Route: 064

REACTIONS (15)
  - Cardiomyopathy [Fatal]
  - Hyperphosphataemia [Fatal]
  - Hyperuricaemia [Fatal]
  - Lactic acidosis [Fatal]
  - Metabolic acidosis [Fatal]
  - Tumour lysis syndrome [Fatal]
  - Acute kidney injury [Fatal]
  - Hypertrophic cardiomyopathy [Fatal]
  - Cardiac dysfunction [Fatal]
  - Nodule [Unknown]
  - Oliguria [Fatal]
  - Hyponatraemia [Fatal]
  - Hyperkalaemia [Fatal]
  - Hypocalcaemia [Fatal]
  - Anuria [Fatal]
